FAERS Safety Report 4723437-X (Version None)
Quarter: 2005Q3

REPORT INFORMATION
  Report Type: 
  Country: None (occurrence: None)
  Receive Date: 20050725
  Receipt Date: 20050721
  Transmission Date: 20060218
  Serious: Yes (Life-Threatening, Hospitalization)
  Sender: FDA-Public Use
  Company Number: PHNU2005DE02635

PATIENT
  Age: 55 Year
  Sex: Male

DRUGS (1)
  1. PROVAS COMP [Suspect]
     Indication: HYPERTENSION
     Route: 048

REACTIONS (1)
  - ANAPHYLACTIC SHOCK [None]
